FAERS Safety Report 24254969 (Version 1)
Quarter: 2024Q3

REPORT INFORMATION
  Report Type: Spontaneous
  Country: US (occurrence: US)
  Receive Date: 20240827
  Receipt Date: 20240827
  Transmission Date: 20241017
  Serious: No
  Sender: PFIZER
  Company Number: US-PFIZER INC-PV202300191792

PATIENT
  Age: 84 Year
  Sex: Female

DRUGS (3)
  1. LORBRENA [Suspect]
     Active Substance: LORLATINIB
     Indication: Lung neoplasm malignant
     Dosage: 3 TAB ONCE DAILY
     Route: 048
  2. LORBRENA [Suspect]
     Active Substance: LORLATINIB
     Dosage: 25 MG TABLET 2 TABLET PO DAILY
     Route: 048
  3. LORBRENA [Suspect]
     Active Substance: LORLATINIB
     Dosage: 25 MG

REACTIONS (1)
  - Illness [Recovering/Resolving]
